FAERS Safety Report 10408647 (Version 1)
Quarter: 2014Q3

REPORT INFORMATION
  Report Type: Spontaneous
  Country: GB (occurrence: None)
  Receive Date: 20140821
  Receipt Date: 20140821
  Transmission Date: 20150326
  Serious: Yes (Other)
  Sender: FDA-Public Use
  Company Number: AUR-APL-2014-08743

PATIENT
  Age: 53 Year
  Sex: Female

DRUGS (6)
  1. LISINOPRIL(LISINOPRIL) [Concomitant]
     Active Substance: LISINOPRIL
  2. FLUTICASONE(FLUTICASONE) [Concomitant]
  3. SALBUTAMOL(SALBUTAMOL) [Concomitant]
  4. SERTRALINE [Suspect]
     Active Substance: SERTRALINE HYDROCHLORIDE
     Indication: DEPRESSION
     Route: 048
     Dates: start: 20120118, end: 20140714
  5. DIAZEPAM(DIAZEPAM) [Concomitant]
  6. FOLIC ACID (FOLIC ACID) [Concomitant]
     Active Substance: FOLIC ACID

REACTIONS (3)
  - Hepatitis acute [None]
  - Cholelithiasis [None]
  - Hepatic steatosis [None]

NARRATIVE: CASE EVENT DATE: 20140701
